FAERS Safety Report 6138835-X (Version None)
Quarter: 2009Q1

REPORT INFORMATION
  Report Type: 
  Country: None (occurrence: None)
  Receive Date: 20090331
  Receipt Date: 20090325
  Transmission Date: 20090719
  Serious: No
  Sender: FDA-Public Use
  Company Number: US-B.I. PHARMACEUTICALS,INC./RIDGEFIELD-2009-BP-03744BP

PATIENT
  Sex: Male

DRUGS (5)
  1. SPIRIVA [Suspect]
     Indication: DYSPNOEA
     Dosage: 18MCG
     Route: 055
     Dates: start: 20090201
  2. WARFARIN SODIUM [Concomitant]
     Indication: THROMBOSIS
  3. NEXIUM [Concomitant]
     Indication: GASTRIC ULCER
  4. SEDSOL [Concomitant]
     Indication: PRURITUS
  5. ESGIC-PLUS [Concomitant]
     Indication: HEADACHE

REACTIONS (3)
  - INCREASED UPPER AIRWAY SECRETION [None]
  - RHINORRHOEA [None]
  - SNEEZING [None]
